FAERS Safety Report 4788461-X (Version None)
Quarter: 2005Q4

REPORT INFORMATION
  Report Type: 
  Country: None (occurrence: None)
  Receive Date: 20051005
  Receipt Date: 20051005
  Transmission Date: 20060501
  Serious: Yes (Life-Threatening, Hospitalization)
  Sender: FDA-Public Use
  Company Number: None

PATIENT
  Age: 56 Year
  Sex: Male

DRUGS (1)
  1. VORICONAZOLE [Suspect]
     Indication: SINUSITIS ASPERGILLUS
     Dosage: 200 MG, BID, ORAL
     Route: 048

REACTIONS (8)
  - ARRHYTHMIA [None]
  - BRADYCARDIA [None]
  - DIZZINESS [None]
  - DRUG INTERACTION [None]
  - DYSPNOEA [None]
  - PALPITATIONS [None]
  - SYNCOPE [None]
  - TORSADE DE POINTES [None]
